FAERS Safety Report 8902391 (Version 3)
Quarter: 2013Q3

REPORT INFORMATION
  Report Type: Report from Study
  Country: GB (occurrence: GB)
  Receive Date: 20121112
  Receipt Date: 20130912
  Transmission Date: 20140515
  Serious: Yes (Death, Other)
  Sender: FDA-Public Use
  Company Number: GB-ROCHE-1154136

PATIENT
  Sex: Male

DRUGS (8)
  1. RITUXIMAB [Suspect]
     Indication: RHEUMATOID ARTHRITIS
     Dosage: LAST DOSE PRIOR TO SAE: 04/JAN/2012
     Route: 065
     Dates: start: 20101110
  2. METFORMIN [Concomitant]
     Route: 065
  3. DIGOXIN [Concomitant]
  4. GLICLAZIDE [Concomitant]
  5. FUROSEMIDE [Concomitant]
  6. WARFARIN [Concomitant]
  7. BUDESONIDE [Concomitant]
  8. FORMOTEROL [Concomitant]

REACTIONS (6)
  - Interstitial lung disease [Fatal]
  - Bronchitis [Fatal]
  - Coronary artery stenosis [Fatal]
  - Arteriosclerosis coronary artery [Fatal]
  - Lung disorder [Unknown]
  - Pneumonia [Fatal]
